FAERS Safety Report 6687948-2 (Version None)
Quarter: 2010Q2

REPORT INFORMATION
  Report Type: 
  Country: None (occurrence: None)
  Receive Date: 20100420
  Receipt Date: 20100412
  Transmission Date: 20101027
  Serious: Yes (Other)
  Sender: FDA-Public Use
  Company Number: US-ASTRAZENECA-2009UW17945

PATIENT
  Sex: Male

DRUGS (13)
  1. SEROQUEL [Suspect]
     Dosage: 50-200 MG DAILY
     Route: 048
     Dates: start: 20020201
  2. PAXIL [Concomitant]
     Dates: start: 20020201
  3. ZYPREXA [Concomitant]
     Dates: start: 20020101
  4. XANAX [Concomitant]
     Dosage: 0.5-4 MG DAILY
     Dates: start: 20020201
  5. RISPERDAL [Concomitant]
     Dates: start: 20050901
  6. ZOLOFT [Concomitant]
     Dates: start: 20050901
  7. VISTARIL [Concomitant]
     Dates: start: 20050901
  8. NEURONTIN [Concomitant]
     Route: 048
     Dates: start: 20050101
  9. BUSPAR [Concomitant]
  10. TRAZODONE HCL [Concomitant]
  11. IMITREX [Concomitant]
     Indication: MIGRAINE
     Route: 048
     Dates: start: 20050101
  12. FIORICET [Concomitant]
     Indication: MIGRAINE
     Dosage: 2 P.O. Q4H PRN
     Route: 048
     Dates: start: 20050101
  13. LIPITOR [Concomitant]
     Route: 048

REACTIONS (3)
  - DIABETES MELLITUS [None]
  - NEUROPATHY PERIPHERAL [None]
  - TYPE 2 DIABETES MELLITUS [None]
